FAERS Safety Report 6941143-8 (Version None)
Quarter: 2010Q3

REPORT INFORMATION
  Report Type: 
  Country: None (occurrence: None)
  Receive Date: 20100825
  Receipt Date: 20100515
  Transmission Date: 20110219
  Serious: Yes (Hospitalization)
  Sender: FDA-Public Use
  Company Number: US-BRISTOL-MYERS SQUIBB COMPANY-15112543

PATIENT
  Age: 86 Year
  Sex: Male

DRUGS (2)
  1. ONGLYZA [Suspect]
     Route: 048
     Dates: start: 20100101
  2. COUMADIN [Concomitant]

REACTIONS (2)
  - NAUSEA [None]
  - VOMITING [None]
